FAERS Safety Report 19834422 (Version 1)
Quarter: 2021Q3

REPORT INFORMATION
  Report Type: Spontaneous
  Country: US (occurrence: US)
  Receive Date: 20210915
  Receipt Date: 20210915
  Transmission Date: 20211014
  Serious: Yes (Other)
  Sender: FDA-Public Use
  Company Number: US-ASTRAZENECA-2021A717624

PATIENT
  Age: 68 Year
  Sex: Female
  Weight: 83.9 kg

DRUGS (5)
  1. NOVOLOG [Concomitant]
     Active Substance: INSULIN ASPART
     Indication: BLOOD GLUCOSE
     Route: 065
  2. GLIMEPERIDE [Concomitant]
     Active Substance: GLIMEPIRIDE
     Indication: BLOOD GLUCOSE
     Route: 065
  3. BYDUREON [Suspect]
     Active Substance: EXENATIDE
     Indication: TYPE 2 DIABETES MELLITUS
     Dosage: UNKNOWN UNKNOWN
     Route: 058
  4. BYDUREON BCISE [Suspect]
     Active Substance: EXENATIDE
     Indication: TYPE 2 DIABETES MELLITUS
     Route: 058
     Dates: start: 202108
  5. BASAGLAR [Concomitant]
     Active Substance: INSULIN GLARGINE
     Indication: BLOOD GLUCOSE
     Route: 065

REACTIONS (8)
  - Drug ineffective [Unknown]
  - Weight increased [Not Recovered/Not Resolved]
  - Memory impairment [Unknown]
  - Cataract [Not Recovered/Not Resolved]
  - Migraine [Unknown]
  - Mouth breathing [Unknown]
  - Oesophageal disorder [Not Recovered/Not Resolved]
  - Brain neoplasm [Not Recovered/Not Resolved]

NARRATIVE: CASE EVENT DATE: 2021
